FAERS Safety Report 15841367 (Version 1)
Quarter: 2019Q1

REPORT INFORMATION
  Report Type: Spontaneous
  Country: US (occurrence: US)
  Receive Date: 20190118
  Receipt Date: 20190118
  Transmission Date: 20190417
  Serious: No
  Sender: FDA-Public Use
  Company Number: US-009507513-1901USA006081

PATIENT
  Age: 70 Year
  Sex: Female

DRUGS (2)
  1. BELSOMRA [Suspect]
     Active Substance: SUVOREXANT
     Indication: INSOMNIA
     Dosage: 1 TABLET TAKEN AT THE BEDTIME
     Route: 048
     Dates: start: 20190113
  2. MK-0000 (111) [Suspect]
     Active Substance: INVESTIGATIONAL PRODUCT
     Indication: SLEEP DISORDER THERAPY
     Dosage: UNK

REACTIONS (3)
  - Intentional product misuse [Unknown]
  - Drug ineffective [Not Recovered/Not Resolved]
  - Drug ineffective [Unknown]

NARRATIVE: CASE EVENT DATE: 20190113
